FAERS Safety Report 9276187 (Version 8)
Quarter: 2014Q3

REPORT INFORMATION
  Report Type: Spontaneous
  Country: US (occurrence: US)
  Receive Date: 20130507
  Receipt Date: 20140827
  Transmission Date: 20150326
  Serious: No
  Sender: FDA-Public Use
  Company Number: US-009507513-1305USA000877

PATIENT
  Sex: Male
  Weight: 192.4 kg

DRUGS (2)
  1. PROSCAR [Suspect]
     Active Substance: FINASTERIDE
     Indication: ALOPECIA
     Dosage: 5 MG, UNK
     Route: 048
     Dates: start: 20080709, end: 20090127
  2. FINASTERIDE. [Suspect]
     Active Substance: FINASTERIDE
     Dosage: 1/4 TABLET DAILY
     Route: 048
     Dates: start: 20080712, end: 20090127

REACTIONS (13)
  - Azoospermia [Unknown]
  - Erectile dysfunction [Unknown]
  - Blood testosterone increased [Unknown]
  - Anxiety [Unknown]
  - Sexual dysfunction [Not Recovered/Not Resolved]
  - Blood testosterone decreased [Unknown]
  - Drug administration error [Unknown]
  - Depression [Unknown]
  - Depression [Unknown]
  - Wrong technique in drug usage process [Unknown]
  - Anxiety [Unknown]
  - Infertility [Unknown]
  - Hypogonadism [Unknown]

NARRATIVE: CASE EVENT DATE: 20080709
